FAERS Safety Report 22132227 (Version 1)
Quarter: 2023Q1

REPORT INFORMATION
  Report Type: Spontaneous
  Country: US (occurrence: None)
  Receive Date: 20230322
  Receipt Date: 20230322
  Transmission Date: 20230418
  Serious: No
  Sender: FDA-Public Use
  Company Number: None

PATIENT
  Age: 64 Year
  Sex: Female

DRUGS (2)
  1. LATANOPROST [Suspect]
     Active Substance: LATANOPROST
     Indication: Open angle glaucoma
     Dosage: OTHER FREQUENCY : QHS;?OTHER ROUTE : OU;?
     Route: 050
     Dates: start: 202002, end: 202003
  2. LUMIGAN [Suspect]
     Active Substance: BIMATOPROST
     Indication: Open angle glaucoma
     Dosage: OTHER FREQUENCY : QHS;?OTHER ROUTE : OU;?
     Route: 050
     Dates: start: 201912, end: 202002

REACTIONS (2)
  - Instillation site erythema [None]
  - Instillation site irritation [None]

NARRATIVE: CASE EVENT DATE: 20200301
